FAERS Safety Report 4929088-6 (Version None)
Quarter: 2006Q1

REPORT INFORMATION
  Report Type: 
  Country: None (occurrence: None)
  Receive Date: 20060228
  Receipt Date: 20060228
  Transmission Date: 20060701
  Serious: Yes (Hospitalization)
  Sender: FDA-Public Use
  Company Number: None

PATIENT
  Age: 63 Year
  Sex: Male
  Weight: 95.2554 kg

DRUGS (1)
  1. CIPROFLOXACIN [Suspect]
     Indication: URINARY TRACT INFECTION
     Dosage: FORGET 1/DAY INJ
     Dates: start: 20050102, end: 20050104

REACTIONS (4)
  - ATRIAL FIBRILLATION [None]
  - CHILLS [None]
  - CONDITION AGGRAVATED [None]
  - HEART RATE IRREGULAR [None]
